FAERS Safety Report 8814079 (Version 1)
Quarter: 2012Q4

REPORT INFORMATION
  Report Type: 
  Country: US (occurrence: US)
  Receive Date: 20120928
  Receipt Date: 20120928
  Transmission Date: 20130627
  Serious: No
  Sender: FDA-Public Use
  Company Number: US-PFIZER INC-2012238059

PATIENT
  Age: 44 Year
  Sex: Female
  Weight: 61.22 kg

DRUGS (7)
  1. LYRICA [Suspect]
     Indication: FIBROMYALGIA
     Dosage: 50 mg, 1x/day
     Route: 048
     Dates: start: 201206, end: 201207
  2. LYRICA [Suspect]
     Indication: NECK PAIN
     Dosage: 50 mg, 2x/day
     Route: 048
     Dates: start: 201207, end: 20120920
  3. LYRICA [Suspect]
     Dosage: 50 mg, 1x/day
     Route: 048
     Dates: start: 20120921
  4. CYMBALTA [Suspect]
     Dosage: UNK
  5. XANAX [Concomitant]
     Dosage: UNK
  6. AMBIEN [Concomitant]
     Indication: SLEEP DISORDER
     Dosage: UNK, as needed
  7. ATENOLOL [Concomitant]
     Dosage: UNK

REACTIONS (6)
  - Weight increased [Not Recovered/Not Resolved]
  - Increased appetite [Unknown]
  - Headache [Unknown]
  - Movement disorder [Not Recovered/Not Resolved]
  - Pain [Not Recovered/Not Resolved]
  - Drug ineffective [Unknown]
